FAERS Safety Report 17509552 (Version 1)
Quarter: 2020Q1

REPORT INFORMATION
  Report Type: Spontaneous
  Country: US (occurrence: US)
  Receive Date: 20200226
  Receipt Date: 20200226
  Transmission Date: 20200409
  Serious: Yes (Hospitalization)
  Sender: FDA-Public Use
  Company Number: None

PATIENT
  Sex: Female

DRUGS (9)
  1. RALOXIFEN [Concomitant]
     Active Substance: RALOXIFENE
  2. METHOTREXATE. [Concomitant]
     Active Substance: METHOTREXATE
  3. HUMIRA [Suspect]
     Active Substance: ADALIMUMAB
     Indication: RHEUMATOID ARTHRITIS
     Route: 058
     Dates: start: 20160720
  4. PROLIA [Concomitant]
     Active Substance: DENOSUMAB
  5. FAMOTIDINE. [Concomitant]
     Active Substance: FAMOTIDINE
  6. ONDANSETRON [Concomitant]
     Active Substance: ONDANSETRON
  7. DOK [Concomitant]
     Active Substance: DOCUSATE SODIUM
  8. FOLIC ACID. [Concomitant]
     Active Substance: FOLIC ACID
  9. FERROCITE [Concomitant]
     Active Substance: FERROUS FUMARATE

REACTIONS (1)
  - Hip fracture [None]
